FAERS Safety Report 4868475-1 (Version None)
Quarter: 2005Q4

REPORT INFORMATION
  Report Type: 
  Country: None (occurrence: None)
  Receive Date: 20051223
  Receipt Date: 20051215
  Transmission Date: 20060501
  Serious: Yes (Disabling, Other)
  Sender: FDA-Public Use
  Company Number: 2005169151

PATIENT
  Sex: Male
  Weight: 113.3993 kg

DRUGS (10)
  1. LIPITOR [Suspect]
     Indication: BLOOD CHOLESTEROL INCREASED
     Dosage: 10 MG (10 MG, 1 IN 1D), UNKNOWN
     Dates: start: 20000101
  2. LOPRESSOR [Concomitant]
  3. PLETAL [Concomitant]
  4. THEOPHYLLINE [Concomitant]
  5. ALLOPURINOL [Concomitant]
  6. DIOVAN HCT [Concomitant]
  7. COSOPT [Concomitant]
  8. SINGULAIR ^MERCK^ (MONTELUKAST SODIUM) [Concomitant]
  9. ALL OTHER THERAPEUTIC PRODUCTS (ALL OTHER THERAPEUTIC PRODUCTS) [Concomitant]
  10. ASPIRIN [Concomitant]

REACTIONS (5)
  - ARTERIOSCLEROSIS [None]
  - ARTHRITIS [None]
  - CARDIAC DISORDER [None]
  - CONDITION AGGRAVATED [None]
  - PAIN [None]
